FAERS Safety Report 7350629-6 (Version None)
Quarter: 2011Q1

REPORT INFORMATION
  Report Type: 
  Country: None (occurrence: None)
  Receive Date: 20110303
  Receipt Date: 20110223
  Transmission Date: 20110831
  Serious: Yes (Hospitalization)
  Sender: FDA-Public Use
  Company Number: 023312

PATIENT
  Sex: Male
  Weight: 104 kg

DRUGS (7)
  1. METHOTREXATE [Concomitant]
  2. FOLIC ACID [Concomitant]
  3. PLAQUENIL [Concomitant]
  4. CIMZIA [Suspect]
     Indication: RHEUMATOID ARTHRITIS
     Dosage: (200 MG 1X/2 WEEKS SUBCUTANEOUS)
     Route: 058
     Dates: start: 20100301
  5. LIPITOR [Concomitant]
  6. NORVASC [Concomitant]
  7. AVALIDE [Concomitant]

REACTIONS (1)
  - PERIDIVERTICULITIS [None]
